FAERS Safety Report 10007413 (Version 1)
Quarter: 2014Q1

REPORT INFORMATION
  Report Type: Spontaneous
  Country: US (occurrence: US)
  Receive Date: 20140313
  Receipt Date: 20140313
  Transmission Date: 20141002
  Serious: No
  Sender: FDA-Public Use
  Company Number: US-PFIZER INC-2014068706

PATIENT
  Age: 40 Year
  Sex: Female
  Weight: 61.68 kg

DRUGS (4)
  1. AZITHROMYCIN [Suspect]
     Indication: BRONCHITIS
     Dosage: 250 MG, 2X/DAY
     Route: 048
     Dates: start: 20140307
  2. BACLOFEN [Concomitant]
     Dosage: UNK
  3. NEURONTIN [Concomitant]
     Dosage: UNK
  4. VERAPAMIL [Concomitant]
     Dosage: UNK

REACTIONS (1)
  - Pain [Unknown]
